FAERS Safety Report 7648679-5 (Version None)
Quarter: 2011Q3

REPORT INFORMATION
  Report Type: 
  Country: None (occurrence: None)
  Receive Date: 20110801
  Receipt Date: 20110721
  Transmission Date: 20111222
  Serious: Yes (Other)
  Sender: FDA-Public Use
  Company Number: PHHY2011CA65958

PATIENT
  Sex: Female

DRUGS (4)
  1. CALCIUM ACETATE [Concomitant]
     Dosage: UNK UKN, UNK
  2. MICARDIS [Concomitant]
     Dosage: UNK UKN, UNK
  3. ZOLEDRONOC ACID [Suspect]
     Dosage: UNK UKN, UNK
     Route: 042
     Dates: start: 20110714
  4. ASPIRIN [Concomitant]
     Dosage: 81 MG, UNK

REACTIONS (3)
  - PRURITUS [None]
  - RASH PAPULAR [None]
  - CONJUNCTIVAL HYPERAEMIA [None]
